FAERS Safety Report 11233659 (Version 1)
Quarter: 2015Q3

REPORT INFORMATION
  Report Type: Spontaneous
  Country: CA (occurrence: CA)
  Receive Date: 20150702
  Receipt Date: 20150702
  Transmission Date: 20151125
  Serious: Yes (Other)
  Sender: FDA-Public Use
  Company Number: CA-TEVA-574139ACC

PATIENT
  Age: 64 Year
  Sex: Female
  Weight: 58.11 kg

DRUGS (2)
  1. NOVO-RISEDRONATE [Suspect]
     Active Substance: RISEDRONATE SODIUM
     Indication: PRODUCT USED FOR UNKNOWN INDICATION
     Dosage: 5 MILLIGRAM DAILY;
     Route: 048
  2. VITAMIN D [Concomitant]
     Active Substance: CHOLECALCIFEROL
     Indication: OSTEOPOROSIS
     Dosage: UNKNOWN FORM STRENGTH
     Route: 065

REACTIONS (4)
  - Arthralgia [Recovered/Resolved with Sequelae]
  - Musculoskeletal pain [Recovered/Resolved with Sequelae]
  - Suicidal ideation [Recovered/Resolved with Sequelae]
  - Neck pain [Recovered/Resolved with Sequelae]
